FAERS Safety Report 14237853 (Version 1)
Quarter: 2017Q4

REPORT INFORMATION
  Report Type: Spontaneous
  Country: US (occurrence: US)
  Receive Date: 20171130
  Receipt Date: 20171130
  Transmission Date: 20180321
  Serious: No
  Sender: FDA-Public Use
  Company Number: US-BRISTOL-MYERS SQUIBB COMPANY-BMS-2017-108388

PATIENT
  Sex: Male

DRUGS (1)
  1. SPRYCEL [Suspect]
     Active Substance: DASATINIB
     Indication: SPINAL OSTEOARTHRITIS
     Dosage: 100 MG, QD
     Route: 048
     Dates: start: 20160302

REACTIONS (3)
  - Wound [Unknown]
  - Impaired healing [Unknown]
  - Product use in unapproved indication [Unknown]
